FAERS Safety Report 12739569 (Version 1)
Quarter: 2016Q3

REPORT INFORMATION
  Report Type: Report from Study
  Country: US (occurrence: US)
  Receive Date: 20160913
  Receipt Date: 20160913
  Transmission Date: 20161109
  Serious: Yes (Other)
  Sender: FDA-Public Use
  Company Number: PHEH2016US022932

PATIENT
  Age: 83 Year

DRUGS (1)
  1. EXELON PATCH [Suspect]
     Active Substance: RIVASTIGMINE
     Indication: PRODUCT USED FOR UNKNOWN INDICATION
     Dosage: UNK
     Route: 062
     Dates: start: 20110301

REACTIONS (3)
  - Transient ischaemic attack [Unknown]
  - Lethargy [Unknown]
  - Aneurysm [Unknown]

NARRATIVE: CASE EVENT DATE: 20160201
